FAERS Safety Report 22399697 (Version 1)
Quarter: 2023Q2

REPORT INFORMATION
  Report Type: Spontaneous
  Country: ES (occurrence: ES)
  Receive Date: 20230602
  Receipt Date: 20230602
  Transmission Date: 20230721
  Serious: Yes (Hospitalization, Other)
  Sender: FDA-Public Use
  Company Number: ES-JNJFOC-20230568695

PATIENT
  Age: 38 Year
  Sex: Female

DRUGS (5)
  1. REMICADE [Suspect]
     Active Substance: INFLIXIMAB
     Indication: Crohn^s disease
     Route: 041
     Dates: start: 201411
  2. REMICADE [Suspect]
     Active Substance: INFLIXIMAB
     Route: 041
     Dates: start: 201504, end: 201701
  3. REMICADE [Suspect]
     Active Substance: INFLIXIMAB
     Dosage: 0-2-6 IS RESTARTED WITH MAINTENANCE EVERY 8 WEEKS
     Route: 041
     Dates: start: 202301, end: 202303
  4. AZATHIOPRINE [Concomitant]
     Active Substance: AZATHIOPRINE
     Indication: Product used for unknown indication
     Dosage: DAILY
     Route: 065
     Dates: start: 201411
  5. AZATHIOPRINE [Concomitant]
     Active Substance: AZATHIOPRINE
     Dosage: DAILY
     Route: 065
     Dates: start: 202301

REACTIONS (8)
  - Intestinal obstruction [Unknown]
  - Fistula of small intestine [Unknown]
  - Frequent bowel movements [Unknown]
  - Diarrhoea [Unknown]
  - Pain [Unknown]
  - Drug specific antibody present [Unknown]
  - Drug ineffective [Unknown]
  - Off label use [Unknown]

NARRATIVE: CASE EVENT DATE: 20150401
